FAERS Safety Report 22266358 (Version 1)
Quarter: 2023Q2

REPORT INFORMATION
  Report Type: Spontaneous
  Country: SE (occurrence: SE)
  Receive Date: 20230428
  Receipt Date: 20230428
  Transmission Date: 20230721
  Serious: Yes (Hospitalization)
  Sender: FDA-Public Use
  Company Number: None

PATIENT
  Age: 77 Year
  Sex: Female

DRUGS (4)
  1. PREDNISOLONE [Suspect]
     Active Substance: PREDNISOLONE
     Indication: Polymyalgia rheumatica
     Dosage: -TABLET, (20 MG, 10 MG, 5 MG, 2.5 MG, - TAPERING FROM 20 MG TO 8.75 MG
     Route: 065
     Dates: start: 20220613
  2. ELIQUIS [Concomitant]
     Active Substance: APIXABAN
     Indication: Product used for unknown indication
  3. INNOHEP [Concomitant]
     Active Substance: TINZAPARIN SODIUM
     Indication: Product used for unknown indication
     Dates: start: 20221216, end: 20230115
  4. ACLASTA [Concomitant]
     Active Substance: ZOLEDRONIC ACID
     Indication: Product used for unknown indication
     Dates: start: 20221125, end: 20221125

REACTIONS (14)
  - Pulmonary embolism [Unknown]
  - Eye irritation [Not Recovered/Not Resolved]
  - Sleep disorder [Recovering/Resolving]
  - Acne [Not Recovered/Not Resolved]
  - Muscle spasms [Not Recovered/Not Resolved]
  - Skin ulcer [Not Recovered/Not Resolved]
  - Weight increased [Recovering/Resolving]
  - Psychomotor hyperactivity [Recovering/Resolving]
  - Palpitations [Recovering/Resolving]
  - Swelling face [Unknown]
  - Skin fragility [Recovering/Resolving]
  - Swelling [Recovering/Resolving]
  - Ageusia [Not Recovered/Not Resolved]
  - Skin haemorrhage [Recovering/Resolving]

NARRATIVE: CASE EVENT DATE: 20220601
